FAERS Safety Report 14912851 (Version 1)
Quarter: 2018Q2

REPORT INFORMATION
  Report Type: Spontaneous
  Country: US (occurrence: US)
  Receive Date: 20180501
  Receipt Date: 20180501
  Transmission Date: 20180711
  Serious: No
  Sender: FDA-Public Use
  Company Number: None

PATIENT
  Age: 25 Year
  Sex: Male
  Weight: 108.9 kg

DRUGS (1)
  1. DEXTROAMPHET SACCHARAT, AMPHET ASPARTATE, DEXTROAMPHET SULFATE AND AMPHET SULFAT [Suspect]
     Active Substance: AMPHETAMINE ASPARTATE\AMPHETAMINE SULFATE\DEXTROAMPHETAMINE SACCHARATE\DEXTROAMPHETAMINE SULFATE
     Indication: ATTENTION DEFICIT/HYPERACTIVITY DISORDER
     Dosage: ?          QUANTITY:90 TABLET(S);?
     Route: 048
     Dates: start: 20180418, end: 20180501

REACTIONS (9)
  - Product formulation issue [None]
  - Product tampering [None]
  - Drug effect incomplete [None]
  - Insomnia [None]
  - Disturbance in attention [None]
  - Product taste abnormal [None]
  - Product substitution issue [None]
  - Fatigue [None]
  - Product physical issue [None]

NARRATIVE: CASE EVENT DATE: 20180501
